FAERS Safety Report 19149922 (Version 1)
Quarter: 2021Q2

REPORT INFORMATION
  Report Type: Report from Study
  Country: US (occurrence: US)
  Receive Date: 20210417
  Receipt Date: 20210417
  Transmission Date: 20210717
  Serious: Yes (Other)
  Sender: FDA-Public Use
  Company Number: US-UCBSA-2021016360

PATIENT
  Age: 38 Year
  Sex: Female

DRUGS (2)
  1. BRIVARACETAM [Suspect]
     Active Substance: BRIVARACETAM
     Dosage: 20 MILLIGRAM, 3X/DAY (TID)
     Dates: start: 2021
  2. BRIVARACETAM [Suspect]
     Active Substance: BRIVARACETAM
     Indication: SEIZURE
     Dosage: 20 MILLIGRAM, 2X/DAY (BID)

REACTIONS (5)
  - Seizure [Not Recovered/Not Resolved]
  - COVID-19 immunisation [Unknown]
  - Loss of consciousness [Not Recovered/Not Resolved]
  - Underdose [Unknown]
  - Vaccination complication [Not Recovered/Not Resolved]

NARRATIVE: CASE EVENT DATE: 20210320
